FAERS Safety Report 8871452 (Version 2)
Quarter: 2013Q2

REPORT INFORMATION
  Report Type: Spontaneous
  Country: US (occurrence: US)
  Receive Date: 20121023
  Receipt Date: 20130412
  Transmission Date: 20140414
  Serious: Yes (Other)
  Sender: FDA-Public Use
  Company Number: US-ASTELLAS-2012US007667

PATIENT
  Sex: Male
  Weight: 93 kg

DRUGS (10)
  1. PROGRAF [Suspect]
     Indication: HEART TRANSPLANT
     Dosage: 4 MG, BID
     Route: 048
     Dates: start: 20070105
  2. PROGRAF [Suspect]
     Dosage: UNK
     Route: 065
  3. PROGRAF [Suspect]
     Dosage: UNK
     Route: 065
  4. SIMVASTATIN [Concomitant]
     Indication: PRODUCT USED FOR UNKNOWN INDICATION
     Dosage: 10 MG, ONCE A DAY IN EVENING
     Route: 048
     Dates: start: 2007
  5. CARVEDILOL [Concomitant]
     Indication: PRODUCT USED FOR UNKNOWN INDICATION
     Dosage: 6.25 MG, BID
     Route: 048
     Dates: start: 2007
  6. CALCIUM ACETATE [Concomitant]
     Indication: PRODUCT USED FOR UNKNOWN INDICATION
     Dosage: 1998 MG, TID
     Route: 048
     Dates: start: 2007
  7. CARTIA                             /00002701/ [Concomitant]
     Indication: PRODUCT USED FOR UNKNOWN INDICATION
     Dosage: 240 MG, UID/QD
     Route: 048
     Dates: start: 2007
  8. CALCIUM 500+D [Concomitant]
     Indication: PRODUCT USED FOR UNKNOWN INDICATION
     Dosage: 500 MG, BID
     Route: 048
     Dates: start: 2007
  9. ADVAIR [Concomitant]
     Indication: PRODUCT USED FOR UNKNOWN INDICATION
     Dosage: UNK
     Route: 055
     Dates: start: 2007
  10. SPIRIVA [Concomitant]
     Indication: PRODUCT USED FOR UNKNOWN INDICATION
     Dosage: UNK
     Route: 055
     Dates: start: 2007

REACTIONS (1)
  - Renal failure chronic [Unknown]
